FAERS Safety Report 22206338 (Version 1)
Quarter: 2023Q2

REPORT INFORMATION
  Report Type: Spontaneous
  Country: US (occurrence: None)
  Receive Date: 20230412
  Receipt Date: 20230412
  Transmission Date: 20230722
  Serious: Yes (Hospitalization)
  Sender: FDA-Public Use
  Company Number: None

PATIENT
  Age: 42 Year
  Sex: Female
  Weight: 56.25 kg

DRUGS (17)
  1. HUMIRA [Suspect]
     Active Substance: ADALIMUMAB
     Indication: Psoriasis
     Dosage: OTHER QUANTITY : 1 INJECTION(S);?OTHER FREQUENCY : EVERY 2 WEEKS;?
     Route: 058
  2. HUMIRA [Suspect]
     Active Substance: ADALIMUMAB
     Indication: Psoriatic arthropathy
  3. RITUXIMAB [Concomitant]
     Active Substance: RITUXIMAB
  4. LYRICA [Concomitant]
     Active Substance: PREGABALIN
  5. FENTANYL TRANSDERMAL SYSTEM [Concomitant]
     Active Substance: FENTANYL
  6. OXYCODONE [Concomitant]
     Active Substance: OXYCODONE
  7. LORAZEPAM [Concomitant]
     Active Substance: LORAZEPAM
  8. HYDROXYZINE [Concomitant]
     Active Substance: HYDROXYZINE HYDROCHLORIDE
  9. ZOFRAN [Concomitant]
     Active Substance: ONDANSETRON HYDROCHLORIDE
  10. permethazine [Concomitant]
  11. TRAZODONE [Concomitant]
     Active Substance: TRAZODONE HYDROCHLORIDE
  12. CYCLOBENZAPRINE [Concomitant]
     Active Substance: CYCLOBENZAPRINE
  13. CALCIUM [Concomitant]
     Active Substance: CALCIUM
  14. VITAMIN D [Concomitant]
     Active Substance: VITAMIN D NOS
  15. VITAMINS [Concomitant]
     Active Substance: VITAMINS
  16. CALCIUM CARBONATE [Concomitant]
     Active Substance: CALCIUM CARBONATE
  17. PRILOSEC [Concomitant]
     Active Substance: OMEPRAZOLE MAGNESIUM

REACTIONS (1)
  - Vasculitis [None]

NARRATIVE: CASE EVENT DATE: 20220118
